FAERS Safety Report 14693764 (Version 3)
Quarter: 2018Q3

REPORT INFORMATION
  Report Type: Spontaneous
  Country: JP (occurrence: JP)
  Receive Date: 20180329
  Receipt Date: 20180911
  Transmission Date: 20181010
  Serious: Yes (Other)
  Sender: FDA-Public Use
  Company Number: JP-BRISTOL-MYERS SQUIBB COMPANY-BMS-2018-027921

PATIENT
  Age: 40 Year
  Sex: Male
  Weight: 137.5 kg

DRUGS (1)
  1. BARACLUDE [Suspect]
     Active Substance: ENTECAVIR
     Indication: HEPATITIS B
     Dosage: UNK, QOD
     Route: 065

REACTIONS (2)
  - Chronic kidney disease [Unknown]
  - Diabetes mellitus [Unknown]
